FAERS Safety Report 10464854 (Version 3)
Quarter: 2014Q4

REPORT INFORMATION
  Report Type: Spontaneous
  Country: DE (occurrence: DE)
  Receive Date: 20140919
  Receipt Date: 20141027
  Transmission Date: 20150528
  Serious: Yes (Other)
  Sender: FDA-Public Use
  Company Number: DE-BRISTOL-MYERS SQUIBB COMPANY-21400361

PATIENT
  Age: 71 Year
  Sex: Female
  Weight: 90 kg

DRUGS (4)
  1. KINZALKOMB [Concomitant]
     Active Substance: HYDROCHLOROTHIAZIDE\TELMISARTAN
  2. CONCOR [Concomitant]
     Active Substance: BISOPROLOL FUMARATE
  3. L-THYROXINE [Concomitant]
     Active Substance: LEVOTHYROXINE
  4. ELIQUIS [Suspect]
     Active Substance: APIXABAN

REACTIONS (2)
  - Suicidal ideation [Unknown]
  - Hyperhidrosis [Not Recovered/Not Resolved]

NARRATIVE: CASE EVENT DATE: 2014
